FAERS Safety Report 5512762-0 (Version None)
Quarter: 2007Q4

REPORT INFORMATION
  Report Type: 
  Country: None (occurrence: None)
  Receive Date: 20071112
  Receipt Date: 20070921
  Transmission Date: 20080405
  Serious: Yes (Other)
  Sender: FDA-Public Use
  Company Number: ZA-BRISTOL-MYERS SQUIBB COMPANY-13969951

PATIENT
  Sex: Female

DRUGS (3)
  1. STOCRIN TABS [Suspect]
     Indication: HIV INFECTION
  2. ZERIT [Concomitant]
  3. LAMIVUDINE [Concomitant]

REACTIONS (2)
  - ABORTION SPONTANEOUS [None]
  - PREGNANCY [None]
